FAERS Safety Report 6874228-5 (Version None)
Quarter: 2010Q3

REPORT INFORMATION
  Report Type: 
  Country: None (occurrence: None)
  Receive Date: 20100723
  Receipt Date: 20090509
  Transmission Date: 20110219
  Serious: No
  Sender: FDA-Public Use
  Company Number: US-PFIZER INC-2009191632

PATIENT
  Sex: Female
  Weight: 58.05 kg

DRUGS (4)
  1. CHANTIX [Suspect]
     Dosage: 0.5 MG, 2X/DAY
     Route: 048
     Dates: start: 20090323
  2. LEXAPRO [Concomitant]
     Dosage: 10 MG/DAY
  3. XANAX [Concomitant]
     Dosage: 0.5 MG, AS NEEDED
  4. IMITREX [Concomitant]
     Dosage: UNK

REACTIONS (2)
  - GINGIVAL PAIN [None]
  - GINGIVITIS [None]
